FAERS Safety Report 5777235-9 (Version None)
Quarter: 2008Q2

REPORT INFORMATION
  Report Type: 
  Country: None (occurrence: None)
  Receive Date: 20080618
  Receipt Date: 20080610
  Transmission Date: 20081010
  Serious: Yes (Other)
  Sender: FDA-Public Use
  Company Number: CA-ALLERGAN-0807038US

PATIENT
  Age: 37 Year
  Sex: Female

DRUGS (1)
  1. BOTOX [Suspect]
     Indication: DRUG USE FOR UNKNOWN INDICATION

REACTIONS (3)
  - BLADDER DISCOMFORT [None]
  - DIZZINESS [None]
  - MUSCULAR WEAKNESS [None]
